FAERS Safety Report 5982924-7 (Version None)
Quarter: 2008Q4

REPORT INFORMATION
  Report Type: 
  Country: None (occurrence: None)
  Receive Date: 20081205
  Receipt Date: 20081205
  Transmission Date: 20090506
  Serious: Yes (Other)
  Sender: FDA-Public Use
  Company Number: None

PATIENT
  Sex: Female
  Weight: 55.2 kg

DRUGS (1)
  1. VORICONAZOLE [Suspect]
     Dosage: 220 MG Q12H IV DRIP
     Route: 041
     Dates: start: 20081127, end: 20081128

REACTIONS (3)
  - COLOUR BLINDNESS [None]
  - CONFUSIONAL STATE [None]
  - PHOTOPHOBIA [None]
